FAERS Safety Report 12822627 (Version 1)
Quarter: 2016Q4

REPORT INFORMATION
  Report Type: Spontaneous
  Country: US (occurrence: US)
  Receive Date: 20161006
  Receipt Date: 20161006
  Transmission Date: 20170207
  Serious: No
  Sender: FDA-Public Use
  Company Number: US-AMGEN-USASP2016120221

PATIENT
  Age: 84 Year
  Sex: Female

DRUGS (1)
  1. PROLIA [Suspect]
     Active Substance: DENOSUMAB
     Indication: PRODUCT USED FOR UNKNOWN INDICATION
     Dosage: 60 MG, Q6MO
     Route: 065
     Dates: start: 2015

REACTIONS (7)
  - Peripheral arthritis [Unknown]
  - Fall [Unknown]
  - Foot deformity [Unknown]
  - Hypoaesthesia [Unknown]
  - Drug dose omission [Unknown]
  - Walking aid user [Unknown]
  - Pain in extremity [Unknown]
